FAERS Safety Report 12302842 (Version 1)
Quarter: 2016Q2

REPORT INFORMATION
  Report Type: Spontaneous
  Country: US (occurrence: US)
  Receive Date: 20160426
  Receipt Date: 20160426
  Transmission Date: 20160815
  Serious: No
  Sender: FDA-Public Use
  Company Number: US-LUPIN PHARMACEUTICALS INC.-E2B_00004862

PATIENT
  Sex: Female
  Weight: 63.56 kg

DRUGS (2)
  1. MEMANTINE HCL [Suspect]
     Active Substance: MEMANTINE
     Indication: OBSESSIVE-COMPULSIVE DISORDER
     Route: 048
  2. MEMANTINE HCL [Suspect]
     Active Substance: MEMANTINE
     Indication: THINKING ABNORMAL

REACTIONS (2)
  - No adverse event [Unknown]
  - Product use issue [Unknown]
